FAERS Safety Report 12448143 (Version 1)
Quarter: 2016Q2

REPORT INFORMATION
  Report Type: Spontaneous
  Country: HU (occurrence: HU)
  Receive Date: 20160608
  Receipt Date: 20160608
  Transmission Date: 20160815
  Serious: Yes (Death, Hospitalization, Other)
  Sender: FDA-Public Use
  Company Number: HU-ASTELLAS-2016US021625

PATIENT
  Age: 55 Year
  Sex: Female

DRUGS (1)
  1. ERLOTINIB [Suspect]
     Active Substance: ERLOTINIB
     Indication: LUNG ADENOCARCINOMA
     Dosage: UNK, UNKNOWN FREQ.
     Route: 065
     Dates: start: 20120213

REACTIONS (7)
  - Sepsis [Fatal]
  - Femur fracture [Unknown]
  - Lymphoedema [Unknown]
  - Intervertebral disc protrusion [Unknown]
  - Postoperative abscess [Unknown]
  - Dry skin [Unknown]
  - Sciatica [Unknown]

NARRATIVE: CASE EVENT DATE: 201312
